FAERS Safety Report 5340111-X (Version None)
Quarter: 2007Q2

REPORT INFORMATION
  Report Type: 
  Country: None (occurrence: None)
  Receive Date: 20070525
  Receipt Date: 20070525
  Transmission Date: 20071010
  Serious: Yes (Hospitalization)
  Sender: FDA-Public Use
  Company Number: None

PATIENT
  Age: 57 Year
  Sex: Male
  Weight: 85 kg

DRUGS (2)
  1. SEPTRA DS [Suspect]
     Indication: SUBCUTANEOUS ABSCESS
     Dosage: 1 TAB BID PO
     Route: 048
     Dates: end: 20061103
  2. PERCOCET [Concomitant]

REACTIONS (10)
  - ANOREXIA [None]
  - ASTHENIA [None]
  - CHILLS [None]
  - DERMATITIS EXFOLIATIVE [None]
  - DIZZINESS [None]
  - HEADACHE [None]
  - MALAISE [None]
  - NAUSEA [None]
  - PRURITUS [None]
  - PYREXIA [None]
